FAERS Safety Report 11327481 (Version 1)
Quarter: 2015Q3

REPORT INFORMATION
  Report Type: Spontaneous
  Country: US (occurrence: None)
  Receive Date: 20150629
  Receipt Date: 20150629
  Transmission Date: 20151125
  Serious: No
  Sender: FDA-Public Use
  Company Number: A-NJ2014-108848

PATIENT
  Age: 58 Year
  Sex: Female

DRUGS (4)
  1. SILDENAFIL. [Concomitant]
     Active Substance: SILDENAFIL
  2. LACTULOSE. [Concomitant]
     Active Substance: LACTULOSE
  3. OPSUMIT [Suspect]
     Active Substance: MACITENTAN
     Indication: COR PULMONALE CHRONIC
     Route: 048
     Dates: start: 20140623
  4. TYVASO [Concomitant]
     Active Substance: TREPROSTINIL

REACTIONS (3)
  - Gastrointestinal disorder [None]
  - Constipation [None]
  - Abdominal pain upper [None]
